FAERS Safety Report 19976902 (Version 1)
Quarter: 2021Q4

REPORT INFORMATION
  Report Type: Report from Study
  Country: None (occurrence: PR)
  Receive Date: 20211020
  Receipt Date: 20211020
  Transmission Date: 20220303
  Serious: Yes (Other)
  Sender: FDA-Public Use
  Company Number: PR-ABBVIE-21K-131-4121241-00

PATIENT
  Age: 73 Year
  Sex: Female
  Weight: 51.76 kg

DRUGS (1)
  1. VENCLEXTA [Suspect]
     Active Substance: VENETOCLAX
     Indication: Acute myeloid leukaemia
     Route: 048
     Dates: start: 20200124

REACTIONS (4)
  - Hand fracture [Unknown]
  - Fall [Unknown]
  - Mouth ulceration [Unknown]
  - Gingival discomfort [Unknown]
